FAERS Safety Report 17204217 (Version 1)
Quarter: 2019Q4

REPORT INFORMATION
  Report Type: Report from Study
  Country: US (occurrence: US)
  Receive Date: 20191226
  Receipt Date: 20191226
  Transmission Date: 20200122
  Serious: Yes (Other)
  Sender: FDA-Public Use
  Company Number: US-EISAI MEDICAL RESEARCH-EC-2019-059832

PATIENT
  Sex: Female

DRUGS (4)
  1. LENVIMA [Suspect]
     Active Substance: LENVATINIB
     Dosage: MISSED ONE DOSE
     Route: 048
     Dates: start: 20190727, end: 201909
  2. LENVIMA [Suspect]
     Active Substance: LENVATINIB
     Route: 048
     Dates: start: 201909, end: 20191015
  3. LENVIMA [Suspect]
     Active Substance: LENVATINIB
     Indication: MALIGNANT NEOPLASM OF RENAL PELVIS
     Route: 048
     Dates: start: 20190718, end: 20190726
  4. TAXOL [Suspect]
     Active Substance: PACLITAXEL
     Indication: PRODUCT USED FOR UNKNOWN INDICATION
     Dosage: DOSE AND FREQUENCY UNKNOWN
     Route: 065

REACTIONS (21)
  - Chest pain [Recovered/Resolved]
  - Dehydration [Not Recovered/Not Resolved]
  - Pain in extremity [Unknown]
  - Malignant neoplasm progression [Not Recovered/Not Resolved]
  - Arthralgia [Recovering/Resolving]
  - Bradycardia [Recovered/Resolved]
  - Fatigue [Not Recovered/Not Resolved]
  - Renal failure [Recovering/Resolving]
  - Headache [Recovering/Resolving]
  - Constipation [Unknown]
  - Paraesthesia [Recovering/Resolving]
  - Diarrhoea [Unknown]
  - Carbohydrate antigen 125 increased [Unknown]
  - Oedema peripheral [Recovering/Resolving]
  - Blood pressure increased [Recovering/Resolving]
  - Muscle spasms [Recovering/Resolving]
  - Drug ineffective [Unknown]
  - Hepatic failure [Recovering/Resolving]
  - Dry mouth [Recovering/Resolving]
  - Bone pain [Recovering/Resolving]
  - Hair injury [Recovering/Resolving]

NARRATIVE: CASE EVENT DATE: 2019
